FAERS Safety Report 20755761 (Version 1)
Quarter: 2022Q2

REPORT INFORMATION
  Report Type: Spontaneous
  Country: GH (occurrence: GH)
  Receive Date: 20220427
  Receipt Date: 20220427
  Transmission Date: 20220720
  Serious: Yes (Death)
  Sender: FDA-Public Use
  Company Number: GH-PFIZER INC-202200627917

PATIENT
  Age: 55 Year
  Sex: Female

DRUGS (1)
  1. IBRANCE [Suspect]
     Active Substance: PALBOCICLIB
     Dosage: 125 MG, DAILY
     Route: 048

REACTIONS (1)
  - Death [Fatal]
